FAERS Safety Report 9283685 (Version 1)
Quarter: 2013Q2

REPORT INFORMATION
  Report Type: Spontaneous
  Country: US (occurrence: US)
  Receive Date: 20130510
  Receipt Date: 20130510
  Transmission Date: 20140414
  Serious: Yes (Other)
  Sender: FDA-Public Use
  Company Number: US-GLAXOSMITHKLINE-A1022665A

PATIENT
  Age: 88 Year
  Sex: Male

DRUGS (2)
  1. VOTRIENT [Suspect]
     Indication: BONE CANCER
     Dosage: 800MG PER DAY
     Route: 048
     Dates: start: 20130426
  2. BLOOD PRESSURE MEDICATION [Concomitant]
     Indication: HYPERTENSION

REACTIONS (4)
  - Mental impairment [Unknown]
  - Contusion [Unknown]
  - Pain [Unknown]
  - Glassy eyes [Unknown]
